FAERS Safety Report 6458277-7 (Version None)
Quarter: 2009Q4

REPORT INFORMATION
  Report Type: 
  Country: None (occurrence: None)
  Receive Date: 20091125
  Receipt Date: 20091116
  Transmission Date: 20100525
  Serious: Yes (Hospitalization)
  Sender: FDA-Public Use
  Company Number: US-AMGEN-US369034

PATIENT
  Age: 84 Year
  Sex: Male
  Weight: 78.4 kg

DRUGS (3)
  1. PANITUMUMAB [Suspect]
     Indication: PANCREATIC CARCINOMA
     Route: 042
     Dates: start: 20090928
  2. CAPECITABINE [Suspect]
     Route: 048
     Dates: start: 20090928, end: 20091008
  3. RADIATION THERAPY [Suspect]
     Dates: end: 20091012

REACTIONS (5)
  - CHEST PAIN [None]
  - DUODENAL ULCER [None]
  - NAUSEA [None]
  - VOMITING [None]
  - WEIGHT DECREASED [None]
